FAERS Safety Report 24593650 (Version 1)
Quarter: 2024Q4

REPORT INFORMATION
  Report Type: Spontaneous
  Country: US (occurrence: None)
  Receive Date: 20241108
  Receipt Date: 20241108
  Transmission Date: 20250115
  Serious: Yes (Hospitalization)
  Sender: Public
  Company Number: None

PATIENT
  Age: 62 Year
  Sex: Male
  Weight: 104 kg

DRUGS (2)
  1. XELODA [Suspect]
     Active Substance: CAPECITABINE
     Dates: end: 20241023
  2. ELOXATIN [Suspect]
     Active Substance: OXALIPLATIN
     Dates: end: 20241017

REACTIONS (11)
  - Haematuria [None]
  - Malaise [None]
  - Abdominal discomfort [None]
  - Carbon dioxide abnormal [None]
  - Blood glucose increased [None]
  - International normalised ratio increased [None]
  - Prothrombin time prolonged [None]
  - Activated partial thromboplastin time prolonged [None]
  - Hyperhidrosis [None]
  - Electrocardiogram abnormal [None]
  - Computerised tomogram abnormal [None]

NARRATIVE: CASE EVENT DATE: 20241024
